FAERS Safety Report 9119202 (Version 2)
Quarter: 2013Q3

REPORT INFORMATION
  Report Type: Report from Study
  Country: JP (occurrence: JP)
  Receive Date: 20130207
  Receipt Date: 20130913
  Transmission Date: 20140515
  Serious: Yes (Other)
  Sender: FDA-Public Use
  Company Number: JP-VERTEX PHARMACEUTICALS INC.-2013-001589

PATIENT
  Age: 64 Year
  Sex: Male

DRUGS (19)
  1. VX-950 (TELAPREVIR) [Suspect]
     Indication: CHRONIC HEPATITIS C
     Dosage: 2250 MG, QD
     Route: 048
     Dates: start: 20120406, end: 20120426
  2. VX-950 (TELAPREVIR) [Suspect]
     Dosage: 1500 MG, QD
     Route: 048
     Dates: start: 20120427, end: 20120614
  3. VX-950 (TELAPREVIR) [Suspect]
     Dosage: 750 MG, QD
     Route: 048
     Dates: start: 20120615, end: 20120629
  4. PEGINTERFERON ALFA-2B [Suspect]
     Indication: CHRONIC HEPATITIS C
     Dosage: 1.5 ?G/KG, WEEKLY
     Route: 058
     Dates: start: 20120406, end: 20120531
  5. PEGINTERFERON ALFA-2B [Suspect]
     Dosage: 1.0 ?G/KG, WEEKLY
     Route: 058
     Dates: start: 20120601, end: 20120614
  6. PEGINTERFERON ALFA-2B [Suspect]
     Dosage: 1.5 ?G/KG, WEEKLY
     Route: 058
     Dates: start: 20120615, end: 20120621
  7. PEGINTERFERON ALFA-2B [Suspect]
     Dosage: 1.0 ?G/KG, WEEKLY
     Route: 058
     Dates: start: 20120622, end: 20120914
  8. RIBAVIRIN [Suspect]
     Indication: CHRONIC HEPATITIS C
     Dosage: 600 MG, QD
     Route: 048
     Dates: start: 20120406, end: 20120419
  9. RIBAVIRIN [Suspect]
     Dosage: 400 MG, QD
     Route: 048
     Dates: start: 20120420, end: 20120426
  10. RIBAVIRIN [Suspect]
     Dosage: 200 MG, QD
     Route: 048
     Dates: start: 20120427, end: 20120712
  11. RIBAVIRIN [Suspect]
     Dosage: 600 MG, QD
     Route: 048
     Dates: start: 20120713, end: 20120726
  12. RIBAVIRIN [Suspect]
     Dosage: 400 MG, QD
     Route: 048
     Dates: start: 20120727, end: 20120809
  13. RIBAVIRIN [Suspect]
     Dosage: 200 MG, QD
     Route: 048
     Dates: start: 20120810, end: 20120823
  14. RIBAVIRIN [Suspect]
     Dosage: 400 MG, QD
     Route: 048
     Dates: start: 20120824, end: 20120914
  15. URSO [Concomitant]
     Dosage: 900 MG, QD
     Route: 048
     Dates: end: 20120705
  16. GLYCYRON [Concomitant]
     Dosage: 3 DF, QD
     Route: 048
     Dates: end: 20120705
  17. OMEPRAL [Concomitant]
     Dosage: 10 MG, QD
     Route: 048
     Dates: end: 20120524
  18. ALINAMIN F [Concomitant]
     Dosage: 50 MG, QD
     Route: 048
  19. NEXIUM [Concomitant]
     Dosage: 20 MG, QD
     Route: 048
     Dates: start: 20120525, end: 20120914

REACTIONS (1)
  - Neutrophil count decreased [Not Recovered/Not Resolved]
